FAERS Safety Report 12598035 (Version 3)
Quarter: 2016Q4

REPORT INFORMATION
  Report Type: Report from Study
  Country: CA (occurrence: CA)
  Receive Date: 20160726
  Receipt Date: 20161028
  Transmission Date: 20170207
  Serious: Yes (Hospitalization)
  Sender: FDA-Public Use
  Company Number: CA-HLSUS-2016-CA-000226

PATIENT
  Age: 24 Year
  Sex: Male

DRUGS (2)
  1. PANTAPRAZOLE [Concomitant]
     Active Substance: PANTOPRAZOLE SODIUM
  2. CLOZARIL [Suspect]
     Active Substance: CLOZAPINE
     Route: 048
     Dates: start: 20111104, end: 20160321

REACTIONS (6)
  - Acute kidney injury [Unknown]
  - Neutropenia [Unknown]
  - Schizophrenia [Unknown]
  - Dehydration [Unknown]
  - Gastroenteritis [Recovered/Resolved]
  - Hypovolaemic shock [Unknown]

NARRATIVE: CASE EVENT DATE: 20160318
